FAERS Safety Report 11271337 (Version 1)
Quarter: 2015Q3

REPORT INFORMATION
  Report Type: Spontaneous
  Country: PT (occurrence: PT)
  Receive Date: 20150714
  Receipt Date: 20150714
  Transmission Date: 20151125
  Serious: Yes (Hospitalization, Other)
  Sender: FDA-Public Use
  Company Number: PT-PFIZER INC-2015226956

PATIENT
  Age: 70 Year
  Sex: Female

DRUGS (12)
  1. ZOLOFT [Concomitant]
     Active Substance: SERTRALINE HYDROCHLORIDE
     Indication: ESSENTIAL TREMOR
     Dosage: 100 MG, 1X/DAY
     Route: 048
     Dates: start: 20051025
  2. LYRICA [Suspect]
     Active Substance: PREGABALIN
     Indication: ESSENTIAL TREMOR
     Route: 048
     Dates: start: 200601, end: 20060124
  3. ARCALION [Concomitant]
     Active Substance: SULBUTIAMINE
     Dosage: UNK
     Route: 048
     Dates: start: 20051121
  4. TOPAMAX [Concomitant]
     Active Substance: TOPIRAMATE
     Indication: ESSENTIAL TREMOR
     Route: 048
     Dates: start: 20051125, end: 200601
  5. LASIX [Concomitant]
     Active Substance: FUROSEMIDE
     Indication: HYPERTENSION
     Dosage: 40 MG, 1X/DAY
     Route: 048
  6. CAPTOPRIL. [Concomitant]
     Active Substance: CAPTOPRIL
     Indication: HYPERTENSION
     Dosage: UNK
     Route: 048
     Dates: start: 20051025
  7. PARIET [Concomitant]
     Active Substance: RABEPRAZOLE SODIUM
     Indication: GASTRITIS
     Dosage: UNK
     Dates: start: 20051214, end: 20060201
  8. RIVOTRIL [Concomitant]
     Active Substance: CLONAZEPAM
     Indication: ESSENTIAL TREMOR
     Dosage: UNK
     Route: 048
     Dates: start: 20051025
  9. NORVASC [Concomitant]
     Active Substance: AMLODIPINE BESYLATE
     Indication: HYPERTENSION
     Dosage: 5 MG, 1X/DAY
     Route: 048
     Dates: start: 20051103
  10. TICLOPIDINE HYDROCHLORIDE. [Concomitant]
     Active Substance: TICLOPIDINE HYDROCHLORIDE
     Indication: PROPHYLAXIS
     Dosage: 250 MG, 1X/DAY
     Route: 048
     Dates: start: 20051025
  11. DOMPERIDONA [Concomitant]
     Indication: GASTRITIS
     Dosage: UNK
     Route: 048
  12. PERMADOZE [Concomitant]
     Dosage: UNK
     Route: 048
     Dates: start: 20051121

REACTIONS (5)
  - Toxic skin eruption [Recovered/Resolved]
  - Rash pruritic [Recovered/Resolved]
  - Product use issue [Recovered/Resolved]
  - Rash maculo-papular [Recovered/Resolved]
  - Skin exfoliation [Recovered/Resolved]

NARRATIVE: CASE EVENT DATE: 200601
